FAERS Safety Report 6786622-1 (Version None)
Quarter: 2010Q2

REPORT INFORMATION
  Report Type: 
  Country: None (occurrence: None)
  Receive Date: 20100623
  Receipt Date: 20100610
  Transmission Date: 20101027
  Serious: Yes (Hospitalization)
  Sender: FDA-Public Use
  Company Number: US-ELI_LILLY_AND_COMPANY-US201006003986

PATIENT
  Sex: Female

DRUGS (6)
  1. FORTEO [Suspect]
     Indication: OSTEOPOROSIS
     Dosage: 20 UG, DAILY (1/D)
  2. CELEXA [Concomitant]
     Dosage: UNK, DAILY (1/D)
  3. CALCIUM + VITAMIN D [Concomitant]
  4. ZOCOR [Concomitant]
     Dosage: 40 MG, UNK
  5. SENNA [Concomitant]
  6. ACIDOPHILUS [Concomitant]

REACTIONS (8)
  - ANAEMIA [None]
  - BLOOD GLUCOSE DECREASED [None]
  - BLOOD PRESSURE DECREASED [None]
  - DECREASED APPETITE [None]
  - DIZZINESS [None]
  - INJECTION SITE REACTION [None]
  - MALAISE [None]
  - SURGERY [None]
